FAERS Safety Report 25213857 (Version 1)
Quarter: 2025Q2

REPORT INFORMATION
  Report Type: Spontaneous
  Country: US (occurrence: US)
  Receive Date: 20250418
  Receipt Date: 20250418
  Transmission Date: 20250717
  Serious: No
  Sender: MERCK SHARP & DOHME LLC
  Company Number: US-009507513-2268767

PATIENT
  Sex: Male

DRUGS (4)
  1. SOTATERCEPT [Suspect]
     Active Substance: SOTATERCEPT
     Route: 050
  2. SOTATERCEPT [Suspect]
     Active Substance: SOTATERCEPT
  3. SOTATERCEPT [Suspect]
     Active Substance: SOTATERCEPT
  4. SOTATERCEPT [Suspect]
     Active Substance: SOTATERCEPT

REACTIONS (1)
  - Dyspnoea exertional [Unknown]
